FAERS Safety Report 6875570-4 (Version None)
Quarter: 2010Q3

REPORT INFORMATION
  Report Type: 
  Country: None (occurrence: None)
  Receive Date: 20100727
  Receipt Date: 20100714
  Transmission Date: 20110219
  Serious: Yes (Other)
  Sender: FDA-Public Use
  Company Number: CA-JNJFOC-20100704878

PATIENT
  Sex: Female
  Weight: 67 kg

DRUGS (16)
  1. REMICADE [Suspect]
     Indication: CROHN'S DISEASE
     Route: 042
  2. REMICADE [Suspect]
     Route: 042
  3. REMICADE [Suspect]
     Route: 042
  4. AMIODARONE HCL [Concomitant]
  5. K-DUR [Concomitant]
  6. LASIX [Concomitant]
  7. PLAVIX [Concomitant]
  8. SYNTHROID [Concomitant]
  9. ACTONEL [Concomitant]
  10. ADVAIR DISKUS 100/50 [Concomitant]
  11. VENTOLIN [Concomitant]
  12. SPIRIVA [Concomitant]
  13. CALCIUM [Concomitant]
  14. VITAMIN D [Concomitant]
  15. DILTIAZEM CD [Concomitant]
  16. FERROUS GLUCONATE [Concomitant]

REACTIONS (5)
  - CHEST PAIN [None]
  - DYSPEPSIA [None]
  - ELECTROCARDIOGRAM ABNORMAL [None]
  - MUSCULOSKELETAL PAIN [None]
  - OROPHARYNGEAL PAIN [None]
